FAERS Safety Report 24548768 (Version 2)
Quarter: 2025Q1

REPORT INFORMATION
  Report Type: Spontaneous
  Country: US (occurrence: US)
  Receive Date: 20241025
  Receipt Date: 20250120
  Transmission Date: 20250409
  Serious: Yes (Other)
  Sender: PFIZER
  Company Number: US-PFIZER INC-202400286336

PATIENT
  Age: 66 Year
  Sex: Female

DRUGS (1)
  1. VELSIPITY [Suspect]
     Active Substance: ETRASIMOD ARGININE
     Dosage: 2 MG, 1X/DAY
     Route: 048

REACTIONS (4)
  - Haematochezia [Unknown]
  - Colitis [Unknown]
  - Defaecation urgency [Unknown]
  - Frequent bowel movements [Unknown]
